FAERS Safety Report 4567924-6 (Version None)
Quarter: 2005Q1

REPORT INFORMATION
  Report Type: 
  Country: None (occurrence: None)
  Receive Date: 20050202
  Receipt Date: 20040206
  Transmission Date: 20050727
  Serious: No
  Sender: FDA-Public Use
  Company Number: US-GLAXOSMITHKLINE-A0497076A

PATIENT
  Age: 62 Year
  Sex: Female

DRUGS (1)
  1. NAVELBINE [Suspect]
     Indication: ILL-DEFINED DISORDER
     Route: 042
     Dates: start: 20040130

REACTIONS (4)
  - BURNING SENSATION [None]
  - ERYTHEMA [None]
  - INJECTION SITE ERYTHEMA [None]
  - INJECTION SITE EXTRAVASATION [None]
